FAERS Safety Report 7971335-0 (Version None)
Quarter: 2011Q4

REPORT INFORMATION
  Report Type: 
  Country: None (occurrence: None)
  Receive Date: 20111212
  Receipt Date: 20111206
  Transmission Date: 20120403
  Serious: Yes (Life-Threatening, Hospitalization, Other)
  Sender: FDA-Public Use
  Company Number: FR-PFIZER INC-2011036499

PATIENT
  Age: 27 Month
  Sex: Female
  Weight: 15 kg

DRUGS (3)
  1. CILOXAN [Suspect]
     Indication: CONJUNCTIVITIS
     Dosage: UNK
     Route: 047
     Dates: start: 20110120, end: 20110121
  2. CEFPODOXIME PROXETIL [Suspect]
     Indication: FEBRILE INFECTION
     Dosage: UNK
     Route: 048
     Dates: start: 20110120, end: 20110122
  3. ALGOTROPYL [Suspect]
     Indication: PYREXIA
     Dosage: UNK
     Route: 054
     Dates: start: 20110120, end: 20110124

REACTIONS (5)
  - HAEMOLYTIC URAEMIC SYNDROME [None]
  - HAEMOLYTIC ANAEMIA [None]
  - NEPHROTIC SYNDROME [None]
  - THROMBOCYTOPENIA [None]
  - PURPURA [None]
